FAERS Safety Report 7690406-X (Version None)
Quarter: 2011Q3

REPORT INFORMATION
  Report Type: 
  Country: None (occurrence: None)
  Receive Date: 20110812
  Receipt Date: 20110802
  Transmission Date: 20111222
  Serious: No
  Sender: FDA-Public Use
  Company Number: SPI201100217

PATIENT
  Age: 30 Year
  Sex: Female

DRUGS (2)
  1. AMITIZA [Suspect]
     Indication: IRRITABLE BOWEL SYNDROME
     Dosage: 8 MCG, QD, ORAL
     Route: 048
  2. ORAL CONTRACEPTIVE NOS (ORAL CONTRACEPTIVE NOS) [Concomitant]

REACTIONS (5)
  - FEELING ABNORMAL [None]
  - CHEST DISCOMFORT [None]
  - ERYTHEMA [None]
  - PAIN [None]
  - SWELLING [None]
